FAERS Safety Report 5880277-6 (Version None)
Quarter: 2008Q3

REPORT INFORMATION
  Report Type: 
  Country: None (occurrence: None)
  Receive Date: 20080912
  Receipt Date: 20080905
  Transmission Date: 20090109
  Serious: Yes (Other)
  Sender: FDA-Public Use
  Company Number: PHHY2008BR20523

PATIENT
  Age: 79 Year
  Sex: Male
  Weight: 80 kg

DRUGS (4)
  1. VOLTAREN [Suspect]
     Route: 048
  2. CORTICOSTEROIDS [Concomitant]
  3. MONOCORDIL [Concomitant]
     Indication: CARDIAC DISORDER
     Dosage: 20 MG, 1 TABLET PER DAY
     Route: 048
  4. PROPRANOLOL [Concomitant]
     Indication: BLOOD PRESSURE
     Dosage: 40 MG, 1 TABLET PER DAY
     Route: 048

REACTIONS (3)
  - ARTERIAL OCCLUSIVE DISEASE [None]
  - CATHETERISATION CARDIAC [None]
  - DUODENAL ULCER [None]
